FAERS Safety Report 13986096 (Version 1)
Quarter: 2017Q3

REPORT INFORMATION
  Report Type: Spontaneous
  Country: US (occurrence: None)
  Receive Date: 20170919
  Receipt Date: 20170919
  Transmission Date: 20171128
  Serious: Yes (Other)
  Sender: FDA-Public Use
  Company Number: None

PATIENT
  Age: 68 Year
  Sex: Female

DRUGS (7)
  1. MULTI VIT [Concomitant]
  2. VITAMIN A AND D [Concomitant]
     Active Substance: LANOLIN\PETROLATUM
  3. CALTRATE [Concomitant]
     Active Substance: CALCIUM CARBONATE
  4. DEXAMETHASONE. [Concomitant]
     Active Substance: DEXAMETHASONE
  5. IBRANCE [Suspect]
     Active Substance: PALBOCICLIB
     Indication: BRAIN NEOPLASM MALIGNANT
     Route: 048
     Dates: start: 20170818
  6. ORPHINE [Concomitant]
  7. AMBIEN [Concomitant]
     Active Substance: ZOLPIDEM TARTRATE

REACTIONS (2)
  - Fatigue [None]
  - Haemorrhage [None]

NARRATIVE: CASE EVENT DATE: 2017
